FAERS Safety Report 7657806-5 (Version None)
Quarter: 2011Q3

REPORT INFORMATION
  Report Type: 
  Country: None (occurrence: None)
  Receive Date: 20110805
  Receipt Date: 20081215
  Transmission Date: 20111222
  Serious: No
  Sender: FDA-Public Use
  Company Number: US-BIOGENIDEC-2008BI024881

PATIENT
  Sex: Female

DRUGS (1)
  1. TYSABRI [Suspect]
     Indication: MULTIPLE SCLEROSIS
     Route: 042
     Dates: start: 20080731, end: 20080828

REACTIONS (20)
  - FLUSHING [None]
  - CHILLS [None]
  - MUSCLE SPASMS [None]
  - VOMITING [None]
  - CARPAL TUNNEL SYNDROME [None]
  - FALL [None]
  - HEADACHE [None]
  - GENERAL SYMPTOM [None]
  - NAUSEA [None]
  - EAR DISCOMFORT [None]
  - VERTIGO [None]
  - WEIGHT DECREASED [None]
  - DIZZINESS [None]
  - NECK PAIN [None]
  - PAIN IN EXTREMITY [None]
  - ALOPECIA [None]
  - MUSCULOSKELETAL STIFFNESS [None]
  - GAIT DISTURBANCE [None]
  - BALANCE DISORDER [None]
  - MIGRAINE [None]
